FAERS Safety Report 5712428-8 (Version None)
Quarter: 2008Q2

REPORT INFORMATION
  Report Type: 
  Country: None (occurrence: None)
  Receive Date: 20080422
  Receipt Date: 20080411
  Transmission Date: 20081010
  Serious: Yes (Hospitalization)
  Sender: FDA-Public Use
  Company Number: PHRM2008FR01274

PATIENT
  Age: 70 Year
  Sex: Female

DRUGS (1)
  1. NISIS [Suspect]
     Indication: SUICIDE ATTEMPT
     Dosage: 1600 MG, ONCE/SINGLE
     Route: 048

REACTIONS (3)
  - BLOOD PRESSURE DECREASED [None]
  - INTENTIONAL OVERDOSE [None]
  - SUICIDE ATTEMPT [None]
